FAERS Safety Report 9302449 (Version 7)
Quarter: 2014Q1

REPORT INFORMATION
  Report Type: Report from Study
  Country: DE (occurrence: DE)
  Receive Date: 20130522
  Receipt Date: 20140220
  Transmission Date: 20141002
  Serious: Yes (Hospitalization, Disabling, Other)
  Sender: FDA-Public Use
  Company Number: DE-CELGENEUS-062-21660-13051747

PATIENT
  Age: 48 Year
  Sex: Female
  Weight: 60 kg

DRUGS (13)
  1. ABRAXANE [Suspect]
     Indication: BREAST CANCER
     Route: 041
     Dates: start: 20130419, end: 20130503
  2. ABRAXANE [Suspect]
     Route: 041
     Dates: start: 20130510
  3. ABRAXANE [Suspect]
     Route: 041
  4. EPIRUBICINE [Suspect]
     Indication: BREAST CANCER
     Route: 041
     Dates: start: 20130308
  5. EPIRUBICINE [Suspect]
     Route: 041
  6. HERCEPTIN [Suspect]
     Indication: BREAST CANCER
     Route: 041
     Dates: start: 20130419, end: 20130503
  7. HERCEPTIN [Suspect]
     Route: 041
     Dates: start: 20130510
  8. NEULASTA [Suspect]
     Indication: BREAST CANCER
     Route: 058
     Dates: start: 20130309, end: 20130504
  9. NEULASTA [Suspect]
     Route: 058
     Dates: start: 20130511
  10. NEULASTA [Suspect]
     Route: 058
     Dates: start: 20130622, end: 20130702
  11. CYCLOPHOSPHAMIDE [Suspect]
     Indication: BREAST CANCER
     Route: 041
     Dates: start: 20130607, end: 20130621
  12. CYCLOPHOSPHAMIDE [Suspect]
     Route: 041
     Dates: start: 20130705
  13. CIPROFLOXACIN [Interacting]
     Indication: PRODUCT USED FOR UNKNOWN INDICATION
     Route: 065
     Dates: start: 20100625, end: 20130702

REACTIONS (2)
  - Alveolitis [Recovered/Resolved]
  - Febrile neutropenia [Recovered/Resolved]
